FAERS Safety Report 9362169 (Version 3)
Quarter: 2013Q3

REPORT INFORMATION
  Report Type: Spontaneous
  Country: US (occurrence: US)
  Receive Date: 20130622
  Receipt Date: 20130809
  Transmission Date: 20140515
  Serious: Yes (Hospitalization, Other)
  Sender: FDA-Public Use
  Company Number: US-MERCK-1306USA009914

PATIENT
  Age: 80 Year
  Sex: Female
  Weight: 80.73 kg

DRUGS (1)
  1. JANUVIA [Suspect]
     Indication: TYPE 2 DIABETES MELLITUS
     Dosage: 100 MG, QD
     Route: 048
     Dates: start: 20110323, end: 20130607

REACTIONS (12)
  - Chest pain [Recovered/Resolved]
  - Pancreatitis acute [Recovered/Resolved]
  - Non-alcoholic steatohepatitis [Unknown]
  - Hypotension [Recovered/Resolved]
  - Bradycardia [Recovered/Resolved]
  - Atrial fibrillation [Recovered/Resolved]
  - Gastritis [Unknown]
  - Oesophagitis [Unknown]
  - Portal hypertension [Unknown]
  - Ejection fraction [Unknown]
  - Abdominal tenderness [Unknown]
  - Lipase increased [Recovered/Resolved]
